FAERS Safety Report 17146845 (Version 1)
Quarter: 2019Q4

REPORT INFORMATION
  Report Type: Spontaneous
  Country: DE (occurrence: DE)
  Receive Date: 20191212
  Receipt Date: 20191212
  Transmission Date: 20200122
  Serious: Yes (Hospitalization)
  Sender: FDA-Public Use
  Company Number: DE-MYLANLABS-2019M1122135

PATIENT
  Age: 75 Year
  Sex: Female

DRUGS (3)
  1. PANTOPRAZOL                        /01263201/ [Concomitant]
     Active Substance: PANTOPRAZOLE
     Dosage: 40 MILLIGRAM, QD (1-0-0-0)
  2. DICLOFENAC [Suspect]
     Active Substance: DICLOFENAC
     Indication: PRODUCT USED FOR UNKNOWN INDICATION
     Dosage: 75 MILLIGRAM, NK
  3. LEVOTHYROXINUM NATRICUM [Concomitant]
     Dosage: 50 MICROGRAM, QD (1-0-0-0)

REACTIONS (2)
  - Dyspnoea [Recovered/Resolved]
  - Hypertensive emergency [Recovered/Resolved]
